FAERS Safety Report 6760818-7 (Version None)
Quarter: 2010Q2

REPORT INFORMATION
  Report Type: 
  Country: None (occurrence: None)
  Receive Date: 20100608
  Receipt Date: 20100531
  Transmission Date: 20101027
  Serious: Yes (Hospitalization)
  Sender: FDA-Public Use
  Company Number: FR-WYE-G06201010

PATIENT
  Sex: Male

DRUGS (6)
  1. TAZOCILLINE [Suspect]
     Indication: PNEUMONIA
     Route: 042
     Dates: start: 20100422, end: 20100429
  2. EUPRESSYL [Concomitant]
     Indication: HYPERTENSION
     Dosage: UNKNOWN
  3. CALCIPARINE [Concomitant]
     Dosage: UNKNOWN
     Route: 058
     Dates: start: 20100402, end: 20100429
  4. LOXEN [Concomitant]
     Indication: HYPERTENSION
     Dosage: UNKNOWN
  5. AMIKIN [Concomitant]
     Indication: PNEUMONIA
     Dosage: 1 DOSE
     Dates: start: 20100401, end: 20100101
  6. NEXIUM [Concomitant]
     Dosage: UNKNOWN
     Dates: start: 20100402, end: 20100429

REACTIONS (3)
  - NEPHROTIC SYNDROME [None]
  - RENAL FAILURE [None]
  - THROMBOCYTOPENIA [None]
